FAERS Safety Report 23093659 (Version 2)
Quarter: 2023Q4

REPORT INFORMATION
  Report Type: Report from Study
  Country: US (occurrence: US)
  Receive Date: 20231023
  Receipt Date: 20231129
  Transmission Date: 20240109
  Serious: Yes (Hospitalization, Other)
  Sender: FDA-Public Use
  Company Number: US-UCBSA-2023050225

PATIENT
  Age: 37 Year
  Sex: Male
  Weight: 57 kg

DRUGS (1)
  1. BRIVARACETAM [Suspect]
     Active Substance: BRIVARACETAM
     Indication: Seizure
     Dosage: 100 MILLIGRAM, 2X/DAY (BID)
     Route: 048

REACTIONS (5)
  - Seizure [Not Recovered/Not Resolved]
  - Treatment noncompliance [Unknown]
  - Product dose omission issue [Unknown]
  - Wrong technique in product usage process [Unknown]
  - Product availability issue [Unknown]

NARRATIVE: CASE EVENT DATE: 20231014
